FAERS Safety Report 13954324 (Version 2)
Quarter: 2017Q3

REPORT INFORMATION
  Report Type: Report from Study
  Country: JP (occurrence: JP)
  Receive Date: 20170911
  Receipt Date: 20170915
  Transmission Date: 20171128
  Serious: Yes (Death, Life-Threatening, Disabling, Other)
  Sender: FDA-Public Use
  Company Number: PHHY2010JP46929

PATIENT
  Age: 64 Year
  Sex: Female
  Weight: 47 kg

DRUGS (7)
  1. LASIX [Concomitant]
     Active Substance: FUROSEMIDE
     Indication: METASTATIC RENAL CELL CARCINOMA
     Dosage: 20 MG,
     Route: 048
     Dates: start: 20100301, end: 20100630
  2. AFINITOR [Suspect]
     Active Substance: EVEROLIMUS
     Indication: RENAL CELL CARCINOMA
     Dosage: 5 MG, QD
     Route: 048
     Dates: start: 20100601, end: 20100630
  3. THYRADIN [Concomitant]
     Active Substance: LEVOTHYROXINE
     Indication: METASTATIC RENAL CELL CARCINOMA
     Dosage: 150 UG
     Route: 048
     Dates: start: 20091109, end: 20100630
  4. GASMOTIN [Concomitant]
     Active Substance: MOSAPRIDE CITRATE
     Indication: METASTATIC RENAL CELL CARCINOMA
     Dosage: 15 MG,
     Route: 048
     Dates: start: 20100531, end: 20100630
  5. WARFARIN [Concomitant]
     Active Substance: WARFARIN
     Indication: METASTATIC RENAL CELL CARCINOMA
     Dosage: 0.5 MG, UNK
     Route: 048
     Dates: start: 20090518, end: 20100630
  6. AFINITOR [Suspect]
     Active Substance: EVEROLIMUS
     Indication: METASTATIC RENAL CELL CARCINOMA
     Dosage: 5 MG, UNK
     Route: 048
     Dates: start: 20100601, end: 20100630
  7. OMEPRAL [Concomitant]
     Active Substance: OMEPRAZOLE
     Indication: METASTATIC RENAL CELL CARCINOMA
     Dosage: 20 MG,
     Route: 048
     Dates: start: 20100518, end: 20100630

REACTIONS (14)
  - Condition aggravated [Fatal]
  - Haematocrit decreased [Not Recovered/Not Resolved]
  - Blood uric acid increased [Not Recovered/Not Resolved]
  - Haemoglobin decreased [Not Recovered/Not Resolved]
  - Ascites [Fatal]
  - C-reactive protein increased [Not Recovered/Not Resolved]
  - Blood creatinine increased [Not Recovered/Not Resolved]
  - Alanine aminotransferase increased [Not Recovered/Not Resolved]
  - Malignant neoplasm progression [Fatal]
  - Blood urea increased [Not Recovered/Not Resolved]
  - Blood alkaline phosphatase increased [Not Recovered/Not Resolved]
  - Aspartate aminotransferase increased [Not Recovered/Not Resolved]
  - Neoplasm progression [Fatal]
  - White blood cell count increased [Unknown]

NARRATIVE: CASE EVENT DATE: 20100628
